FAERS Safety Report 6134096-6 (Version None)
Quarter: 2009Q1

REPORT INFORMATION
  Report Type: 
  Country: None (occurrence: None)
  Receive Date: 20090217
  Receipt Date: 20080206
  Transmission Date: 20090719
  Serious: No
  Sender: FDA-Public Use
  Company Number: AEUSA200800012

PATIENT
  Age: 50 Year
  Sex: Female
  Weight: 58.9676 kg

DRUGS (10)
  1. PROLASTIN [Suspect]
     Indication: ALPHA-1 ANTI-TRYPSIN DEFICIENCY
     Dosage: 5 VIALS; 1X; IV
     Route: 042
     Dates: start: 20050101
  2. WELLBUTRIN [Concomitant]
  3. LASIX [Concomitant]
  4. PREDNISONE [Concomitant]
  5. DUONEB [Concomitant]
  6. PULMICORT-100 [Concomitant]
  7. XOPEMEX [Concomitant]
  8. OXYGEN [Concomitant]
  9. CORTICOSTEROID NOS [Concomitant]
  10. AUGMENTIN '125' [Concomitant]

REACTIONS (8)
  - BACK PAIN [None]
  - FACIAL PAIN [None]
  - HEADACHE [None]
  - HEART RATE INCREASED [None]
  - HYPOAESTHESIA FACIAL [None]
  - INFLUENZA LIKE ILLNESS [None]
  - NERVOUSNESS [None]
  - TREMOR [None]
